FAERS Safety Report 10200445 (Version 2)
Quarter: 2014Q2

REPORT INFORMATION
  Report Type: Spontaneous
  Country: US (occurrence: US)
  Receive Date: 20140528
  Receipt Date: 20140626
  Transmission Date: 20141212
  Serious: Yes (Other)
  Sender: FDA-Public Use
  Company Number: US-AMGEN INC.-USASP2014038567

PATIENT
  Age: 15 Year
  Sex: Female
  Weight: 66.3 kg

DRUGS (4)
  1. ENBREL [Suspect]
     Indication: JUVENILE IDIOPATHIC ARTHRITIS
     Dosage: 50 MG, QWK
     Route: 058
     Dates: start: 20140225
  2. METHOTREXATE [Concomitant]
     Dosage: 2.5 MG, UNK
  3. LEFLUNOMIDE [Concomitant]
     Dosage: 20 MG, UNK
  4. LEFLUNOMIDE [Concomitant]
     Dosage: 10 MG, QD
     Route: 048

REACTIONS (5)
  - Tibia fracture [Not Recovered/Not Resolved]
  - Injection site erythema [Recovering/Resolving]
  - Injection site urticaria [Not Recovered/Not Resolved]
  - Injection site reaction [Recovering/Resolving]
  - Injection site swelling [Recovering/Resolving]
